FAERS Safety Report 9298039 (Version 2)
Quarter: 2013Q3

REPORT INFORMATION
  Report Type: Report from Study
  Country: JP (occurrence: JP)
  Receive Date: 20130520
  Receipt Date: 20130910
  Transmission Date: 20140515
  Serious: No
  Sender: FDA-Public Use
  Company Number: JP-ASTELLAS-2013JP005919

PATIENT
  Age: 71 Year
  Sex: Female
  Weight: 38 kg

DRUGS (3)
  1. MIRABEGRON [Suspect]
     Indication: HYPERTONIC BLADDER
     Dosage: 25 MG, UID/QD
     Route: 048
     Dates: start: 20130129, end: 20130219
  2. URITOS [Concomitant]
     Indication: HYPERTONIC BLADDER
     Dosage: 0.2 MG, UNKNOWN/D
     Route: 048
     Dates: start: 20120717, end: 20130114
  3. BUP-4 [Concomitant]
     Indication: HYPERTONIC BLADDER
     Dosage: 20 MG, UNKNOWN/D
     Route: 048
     Dates: start: 20130115, end: 20130128

REACTIONS (2)
  - Tachycardia [Unknown]
  - Liver disorder [Recovered/Resolved]
